FAERS Safety Report 14166032 (Version 1)
Quarter: 2017Q4

REPORT INFORMATION
  Report Type: Report from Study
  Country: JP (occurrence: JP)
  Receive Date: 20171107
  Receipt Date: 20171107
  Transmission Date: 20180321
  Serious: Yes (Other)
  Sender: FDA-Public Use
  Company Number: JP-MYLANLABS-2017M1068450

PATIENT

DRUGS (3)
  1. EPIRUBICIN [Suspect]
     Active Substance: EPIRUBICIN
     Indication: GASTRIC CANCER
     Route: 065
  2. MITOMYCIN. [Suspect]
     Active Substance: MITOMYCIN
     Indication: GASTRIC CANCER
     Route: 065
  3. FLUOROURACIL. [Suspect]
     Active Substance: FLUOROURACIL
     Indication: GASTRIC CANCER
     Dosage: 333 MG/M2 EACH WEEK
     Route: 065

REACTIONS (1)
  - Hepatic function abnormal [Unknown]
